FAERS Safety Report 8591142-8 (Version None)
Quarter: 2012Q3

REPORT INFORMATION
  Report Type: 
  Country: None (occurrence: None)
  Receive Date: 20120813
  Receipt Date: 20120808
  Transmission Date: 20120928
  Serious: Yes (Hospitalization)
  Sender: FDA-Public Use
  Company Number: DE-ROCHE-1100837

PATIENT
  Age: 57 Year
  Sex: Male

DRUGS (1)
  1. LUCENTIS [Suspect]
     Indication: PRODUCT USED FOR UNKNOWN INDICATION
     Dosage: DATE OF LAST DOSE TAKEN PRIOR TO EVENT:24/APR/2012
     Route: 050
     Dates: start: 20120424

REACTIONS (1)
  - HYPOGLYCAEMIA [None]
